FAERS Safety Report 8809573 (Version 1)
Quarter: 2012Q4

REPORT INFORMATION
  Report Type: 
  Country: BR (occurrence: BR)
  Receive Date: 20120926
  Receipt Date: 20120926
  Transmission Date: 20130627
  Serious: Yes (Hospitalization)
  Sender: FDA-Public Use
  Company Number: BR-ABBOTT-12P-020-0981622-00

PATIENT
  Age: 21 Year
  Sex: Female

DRUGS (2)
  1. HUMIRA [Suspect]
     Indication: CROHN^S DISEASE
     Route: 058
     Dates: start: 201205
  2. AZATHIOPRINE [Concomitant]
     Indication: CROHN^S DISEASE

REACTIONS (3)
  - Subileus [Recovering/Resolving]
  - Small intestinal stenosis [Unknown]
  - Ileal stenosis [Unknown]
